FAERS Safety Report 9185641 (Version 2)
Quarter: 2013Q3

REPORT INFORMATION
  Report Type: Spontaneous
  Country: US (occurrence: None)
  Receive Date: 20120628
  Receipt Date: 20130724
  Transmission Date: 20140515
  Serious: Yes (Hospitalization)
  Sender: FDA-Public Use
  Company Number: PHEH2011US010119

PATIENT
  Age: 64 Year
  Sex: Female

DRUGS (3)
  1. RECLAST [Suspect]
     Indication: OSTEOPOROSIS
     Dosage: UNK UKN, UNK, INTRAVENOUS
     Route: 042
     Dates: start: 20111122
  2. WARFARIN (WARFARIN) [Concomitant]
  3. PREGABALIN (PREGABALIN) [Concomitant]

REACTIONS (3)
  - Vomiting [None]
  - Pyrexia [None]
  - Hypotension [None]
